FAERS Safety Report 5000053-6 (Version None)
Quarter: 2006Q2

REPORT INFORMATION
  Report Type: 
  Country: None (occurrence: None)
  Receive Date: 20060501
  Receipt Date: 20060421
  Transmission Date: 20061013
  Serious: Yes (Other)
  Sender: FDA-Public Use
  Company Number: 2006053716

PATIENT
  Age: 11 Year
  Sex: Male

DRUGS (2)
  1. ZOLOFT [Suspect]
     Indication: ANXIETY
     Dosage: 50 MG (50 MG, 1 IN 1D), ORAL
     Route: 048
     Dates: start: 20051125, end: 20051205
  2. RITALIN (METHYLPHENIDATE HYROCHLORIDE) [Suspect]
     Indication: HYPERKINESIA
     Dosage: 30 MG (10 MG, 3 IN 1 D), ORAL
     Route: 048
     Dates: start: 20010101, end: 20060120

REACTIONS (3)
  - ANXIETY [None]
  - DRUG INTERACTION [None]
  - EPILEPSY [None]
